FAERS Safety Report 6791684-1 (Version None)
Quarter: 2010Q2

REPORT INFORMATION
  Report Type: 
  Country: None (occurrence: None)
  Receive Date: 20100624
  Receipt Date: 20090713
  Transmission Date: 20101027
  Serious: Yes (Other)
  Sender: FDA-Public Use
  Company Number: US-PFIZER INC-2008058422

PATIENT
  Sex: Female
  Weight: 52 kg

DRUGS (6)
  1. PROVERA [Suspect]
     Indication: HORMONE REPLACEMENT THERAPY
     Dosage: 2.5 MG, UNK
     Route: 048
     Dates: start: 19800701, end: 19950501
  2. PREMARIN [Suspect]
     Indication: HORMONE REPLACEMENT THERAPY
     Dosage: 0.625 MG, UNK
     Dates: start: 19800701, end: 19950501
  3. ALPRAZOLAM [Concomitant]
     Indication: ANXIETY
     Dosage: UNK
     Dates: start: 19971125, end: 20040901
  4. ALPRAZOLAM [Concomitant]
     Indication: PANIC DISORDER
  5. XANAX [Concomitant]
     Indication: ANXIETY
     Dosage: UNK
  6. XANAX [Concomitant]
     Indication: PANIC DISORDER

REACTIONS (1)
  - BREAST CANCER FEMALE [None]
